FAERS Safety Report 5599925-3 (Version None)
Quarter: 2007Q4

REPORT INFORMATION
  Report Type: 
  Country: None (occurrence: None)
  Receive Date: 20071226
  Receipt Date: 20071227
  Transmission Date: 20080405
  Serious: No
  Sender: FDA-Public Use
  Company Number: 220685

PATIENT
  Sex: Male

DRUGS (8)
  1. RAPTIVA [Suspect]
     Indication: PSORIASIS
     Dosage: 125 MG, 1/WEEK, SUBCUTANEOUS
     Route: 058
     Dates: start: 20051215
  2. COUMADIN [Concomitant]
  3. LISINOPRIL [Concomitant]
  4. COREG [Concomitant]
  5. DIGOXIN [Concomitant]
  6. FUROSEMIDE [Concomitant]
  7. PRAVACHOL [Concomitant]
  8. HUMULIN 70/30 (INSULIN HUMAN, NPH HUMAN INSULIN ISOPHANE SUSPENSION) [Concomitant]

REACTIONS (1)
  - PSORIASIS [None]
